FAERS Safety Report 23958048 (Version 1)
Quarter: 2024Q2

REPORT INFORMATION
  Report Type: Spontaneous
  Country: US (occurrence: US)
  Receive Date: 20240610
  Receipt Date: 20240610
  Transmission Date: 20240716
  Serious: Yes (Hospitalization, Other)
  Sender: FDA-Public Use
  Company Number: US-GLENMARK PHARMACEUTICALS-2024GMK091349

PATIENT

DRUGS (1)
  1. VERAPAMIL [Suspect]
     Active Substance: VERAPAMIL HYDROCHLORIDE
     Indication: Type 1 diabetes mellitus
     Dosage: 5.8 MILLIGRAM PER KILOGRAM, BID (ONE IN THE MORNING, AND ONE IN THE AFTERNOON)
     Route: 048

REACTIONS (11)
  - Asthenia [Unknown]
  - Dysstasia [Unknown]
  - Cardiotoxicity [Unknown]
  - Atrioventricular septal defect [Unknown]
  - Bundle branch block bilateral [Unknown]
  - Bundle branch block left [Unknown]
  - Dizziness [Unknown]
  - Nausea [Unknown]
  - Sinus bradycardia [Unknown]
  - Accidental overdose [Unknown]
  - Off label use [Unknown]
